FAERS Safety Report 6332358-0 (Version None)
Quarter: 2009Q3

REPORT INFORMATION
  Report Type: 
  Country: None (occurrence: None)
  Receive Date: 20090828
  Receipt Date: 20090824
  Transmission Date: 20100115
  Serious: Yes (Hospitalization, Other)
  Sender: FDA-Public Use
  Company Number: FR-BRISTOL-MYERS SQUIBB COMPANY-14735815

PATIENT
  Age: 42 Year
  Sex: Female

DRUGS (4)
  1. SPRYCEL [Suspect]
     Indication: ACUTE LYMPHOCYTIC LEUKAEMIA
     Dosage: SPRYCEL 50 MG TABS
     Route: 048
     Dates: start: 20070101, end: 20090101
  2. CYMEVAN [Interacting]
     Dates: start: 20081212, end: 20090108
  3. ARANESP [Concomitant]
     Route: 058
     Dates: start: 20090115
  4. NICARDIPINE HCL [Concomitant]
     Route: 048
     Dates: start: 20090131

REACTIONS (7)
  - COLITIS ULCERATIVE [None]
  - CYTOMEGALOVIRUS INFECTION [None]
  - DRUG INTERACTION [None]
  - HYPERTENSION [None]
  - INTERSTITIAL LUNG DISEASE [None]
  - PLEURISY [None]
  - RENAL FAILURE [None]
